FAERS Safety Report 6443293-1 (Version None)
Quarter: 2009Q4

REPORT INFORMATION
  Report Type: 
  Country: None (occurrence: None)
  Receive Date: 20091117
  Receipt Date: 20091112
  Transmission Date: 20100525
  Serious: Yes (Other)
  Sender: FDA-Public Use
  Company Number: US-JNJFOC-20091103960

PATIENT
  Age: 80 Year
  Sex: Female

DRUGS (2)
  1. AMRIX [Suspect]
     Indication: PAIN IN EXTREMITY
     Dosage: 5 TABLETS OVER 3 DAYS
     Route: 048
  2. ENALAPRIL MALEATE [Concomitant]
     Indication: HYPERTENSION

REACTIONS (1)
  - DELIRIUM [None]
